FAERS Safety Report 10556453 (Version 1)
Quarter: 2014Q4

REPORT INFORMATION
  Report Type: Spontaneous
  Country: AU (occurrence: AU)
  Receive Date: 20141031
  Receipt Date: 20141031
  Transmission Date: 20150529
  Serious: Yes (Hospitalization)
  Sender: FDA-Public Use
  Company Number: AU-UCBSA-2014016111

PATIENT
  Age: 45 Year
  Sex: Female

DRUGS (11)
  1. PERAMPANEL [Suspect]
     Active Substance: PERAMPANEL
     Indication: PARTIAL SEIZURES
     Dosage: 6 IN 1 DAY
     Route: 048
     Dates: start: 20131223, end: 20140505
  2. PERAMPANEL [Suspect]
     Active Substance: PERAMPANEL
     Dosage: 8 MG, ONCE DAILY (QD), 2XCPS
     Route: 048
     Dates: start: 20140715, end: 20140915
  3. CLONAZEPAM. [Concomitant]
     Active Substance: CLONAZEPAM
     Indication: SEIZURE
     Dosage: UNK
  4. VIMPAT [Suspect]
     Active Substance: LACOSAMIDE
     Indication: PRODUCT USED FOR UNKNOWN INDICATION
     Dosage: 200 MG
     Route: 065
  5. PERAMPANEL [Suspect]
     Active Substance: PERAMPANEL
     Dosage: 6 IN 1 DAY
     Route: 048
     Dates: start: 20140617, end: 20140709
  6. KEPPRA [Suspect]
     Active Substance: LEVETIRACETAM
     Indication: EPILEPSY
     Dosage: 1500 MG, 2X/DAY (BID)
     Route: 048
     Dates: start: 20130917, end: 20140722
  7. PERAMPANEL [Suspect]
     Active Substance: PERAMPANEL
     Dosage: 6 IN 1 DAY
     Route: 048
     Dates: start: 20140506, end: 20140616
  8. KEPPRA [Suspect]
     Active Substance: LEVETIRACETAM
     Dosage: 1000 MG, 2X/DAY (BID)
     Route: 048
     Dates: start: 20140723, end: 20140729
  9. DIAZEPAM. [Concomitant]
     Active Substance: DIAZEPAM
     Indication: SEIZURE
     Dosage: UNK
  10. PERAMPANEL [Suspect]
     Active Substance: PERAMPANEL
     Dosage: 5 IN 1 DAY
     Route: 048
     Dates: start: 20140710, end: 20140714
  11. KEPPRA [Suspect]
     Active Substance: LEVETIRACETAM
     Dosage: 500 MG, 2X/DAY (BID)
     Route: 048
     Dates: start: 20140730, end: 20140731

REACTIONS (5)
  - Self injurious behaviour [Recovered/Resolved]
  - Irritability [Unknown]
  - Mood swings [Unknown]
  - Psychotic disorder [Recovered/Resolved]
  - Anxiety [Unknown]

NARRATIVE: CASE EVENT DATE: 20140705
